FAERS Safety Report 10153066 (Version 2)
Quarter: 2014Q2

REPORT INFORMATION
  Report Type: Spontaneous
  Country: JP (occurrence: JP)
  Receive Date: 20140505
  Receipt Date: 20140513
  Transmission Date: 20141212
  Serious: No
  Sender: FDA-Public Use
  Company Number: JP-PFIZER INC-2014122892

PATIENT
  Age: 92 Year
  Sex: Male

DRUGS (5)
  1. NORVASC OD [Suspect]
     Indication: HYPERTENSION
     Dosage: 5 MG, DAILY
     Route: 048
     Dates: start: 201103
  2. DONEPEZIL HYDROCHLORIDE [Concomitant]
     Indication: DEMENTIA
     Dosage: 5 MG, DAILY
     Route: 048
  3. MEMARY [Concomitant]
     Indication: DEMENTIA
     Dosage: 5 MG, DAILY
     Route: 048
  4. POLLAKISU [Concomitant]
     Dosage: 2 MG, DAILY
     Route: 048
  5. ZOPICLONE [Concomitant]
     Indication: SLEEP DISORDER
     Dosage: 7.5 MG, DAILY
     Route: 048

REACTIONS (1)
  - Contusion [Recovered/Resolved]
